FAERS Safety Report 11836096 (Version 1)
Quarter: 2015Q4

REPORT INFORMATION
  Report Type: Spontaneous
  Country: JP (occurrence: JP)
  Receive Date: 20151215
  Receipt Date: 20151215
  Transmission Date: 20160305
  Serious: Yes (Death, Hospitalization)
  Sender: FDA-Public Use
  Company Number: JP-BAYER-2015-445755

PATIENT
  Age: 81 Year
  Sex: Female

DRUGS (1)
  1. STIVARGA [Suspect]
     Active Substance: REGORAFENIB
     Indication: COLORECTAL CANCER
     Dosage: 80 MG, QD
     Route: 048
     Dates: start: 20151001, end: 20151008

REACTIONS (2)
  - Pneumonia [Recovering/Resolving]
  - Colorectal cancer [Fatal]

NARRATIVE: CASE EVENT DATE: 20151008
